FAERS Safety Report 6700352-3 (Version None)
Quarter: 2010Q2

REPORT INFORMATION
  Report Type: 
  Country: None (occurrence: None)
  Receive Date: 20100426
  Receipt Date: 20100414
  Transmission Date: 20101027
  Serious: Yes (Death, Hospitalization)
  Sender: FDA-Public Use
  Company Number: 2010MB000022

PATIENT
  Age: 71 Year
  Sex: Female

DRUGS (1)
  1. MOXATAG [Suspect]
     Indication: UPPER RESPIRATORY TRACT INFECTION

REACTIONS (7)
  - ABDOMINAL DISTENSION [None]
  - HYPOTHERMIA [None]
  - LOWER GASTROINTESTINAL HAEMORRHAGE [None]
  - STEVENS-JOHNSON SYNDROME [None]
  - STREPTOCOCCAL INFECTION [None]
  - TOXIC EPIDERMAL NECROLYSIS [None]
  - UPPER GASTROINTESTINAL HAEMORRHAGE [None]
